FAERS Safety Report 8589496-1 (Version None)
Quarter: 2012Q3

REPORT INFORMATION
  Report Type: 
  Country: None (occurrence: None)
  Receive Date: 20120813
  Receipt Date: 20120807
  Transmission Date: 20120928
  Serious: Yes (Hospitalization)
  Sender: FDA-Public Use
  Company Number: ES-ELI_LILLY_AND_COMPANY-ES201208002205

PATIENT
  Sex: Female
  Weight: 53 kg

DRUGS (8)
  1. NOLOTIL [Concomitant]
     Indication: PAIN
     Dosage: UNK, PRN
     Route: 048
  2. ACETILCISTEINA [Concomitant]
     Indication: RESPIRATORY FAILURE
     Dosage: 1 DF, QD
     Route: 048
  3. VENTOLIN [Concomitant]
     Indication: RESPIRATORY FAILURE
     Dosage: UNK, PRN
  4. FORTEO [Suspect]
     Indication: OSTEOPOROSIS
     Dosage: 20 UG, QD
     Route: 058
     Dates: start: 20120712
  5. ACETAMINOPHEN [Concomitant]
     Indication: PAIN
     Dosage: UNK, TID
     Route: 048
  6. SPIRIVA [Concomitant]
     Dosage: UNK
  7. OMEPRAZOLE [Concomitant]
     Indication: PROPHYLAXIS
     Dosage: 20 MG, QD
     Route: 048
  8. CALCIUM CARBONATE [Concomitant]
     Indication: MINERAL SUPPLEMENTATION
     Dosage: UNK, PRN
     Route: 048

REACTIONS (1)
  - JOINT DISLOCATION [None]
